FAERS Safety Report 12328659 (Version 1)
Quarter: 2016Q2

REPORT INFORMATION
  Report Type: Spontaneous
  Country: US (occurrence: US)
  Receive Date: 20160503
  Receipt Date: 20160503
  Transmission Date: 20160815
  Serious: No
  Sender: FDA-Public Use
  Company Number: US-BEH-2015050004

PATIENT
  Sex: Female
  Weight: 61 kg

DRUGS (27)
  1. BENAZEPRIL [Concomitant]
     Active Substance: BENAZEPRIL HYDROCHLORIDE
  2. CRESTOR [Concomitant]
     Active Substance: ROSUVASTATIN CALCIUM
  3. EPINEPHRINE. [Concomitant]
     Active Substance: EPINEPHRINE
  4. FERROUS SULFATE. [Concomitant]
     Active Substance: FERROUS SULFATE
  5. LEVOTHYROXINE. [Concomitant]
     Active Substance: LEVOTHYROXINE
  6. HYDROCHLOROTHIAZIDE. [Concomitant]
     Active Substance: HYDROCHLOROTHIAZIDE
  7. FUROSEMIDE. [Concomitant]
     Active Substance: FUROSEMIDE
  8. ALBUTEROL. [Concomitant]
     Active Substance: ALBUTEROL
  9. VITAMIN B COMPLEX [Concomitant]
     Active Substance: CYANOCOBALAMIN\DEXPANTHENOL\NIACINAMIDE\PYRIDOXINE HYDROCHLORIDE\RIBOFLAVIN 5^-PHOSPHATE SODIUM\THIAMINE HYDROCHLORIDE\VITAMIN B COMPLEX
  10. LACTULOSE. [Concomitant]
     Active Substance: LACTULOSE
  11. NEXIUM [Concomitant]
     Active Substance: ESOMEPRAZOLE MAGNESIUM
  12. HYDROCORTISONE. [Concomitant]
     Active Substance: HYDROCORTISONE
  13. CEFUROXIME. [Concomitant]
     Active Substance: CEFUROXIME
  14. ASPIRIN. [Concomitant]
     Active Substance: ASPIRIN
  15. HIZENTRA [Suspect]
     Active Substance: HUMAN IMMUNOGLOBULIN G
     Indication: IMMUNODEFICIENCY COMMON VARIABLE
     Route: 058
     Dates: start: 20100407
  16. TAMSULOSIN [Concomitant]
     Active Substance: TAMSULOSIN
  17. SINGULAIR [Concomitant]
     Active Substance: MONTELUKAST SODIUM
  18. MICARDIS [Concomitant]
     Active Substance: TELMISARTAN
  19. CARDURA [Concomitant]
     Active Substance: DOXAZOSIN MESYLATE
  20. PATANASE [Concomitant]
     Active Substance: OLOPATADINE HYDROCHLORIDE
  21. CARDIZEM [Concomitant]
     Active Substance: DILTIAZEM HYDROCHLORIDE
  22. LIDOCAINE/PRILOCAINE [Concomitant]
  23. TERAZOSIN [Concomitant]
     Active Substance: TERAZOSIN\TERAZOSIN HYDROCHLORIDE
  24. MULTIVITAMIN [Concomitant]
     Active Substance: VITAMINS
  25. PULMICORT TURBUHALER [Concomitant]
     Active Substance: BUDESONIDE
  26. NASONEX [Concomitant]
     Active Substance: MOMETASONE FUROATE
  27. ADCIRCA [Concomitant]
     Active Substance: TADALAFIL

REACTIONS (2)
  - Nausea [Recovered/Resolved]
  - Infusion site pain [Recovered/Resolved]
